FAERS Safety Report 17486010 (Version 1)
Quarter: 2020Q1

REPORT INFORMATION
  Report Type: Spontaneous
  Country: DK (occurrence: DK)
  Receive Date: 20200303
  Receipt Date: 20200303
  Transmission Date: 20200409
  Serious: Yes (Death)
  Sender: FDA-Public Use
  Company Number: DK-009507513-2002DNK010359

PATIENT
  Age: 74 Year
  Sex: Male

DRUGS (1)
  1. KEYTRUDA [Suspect]
     Active Substance: PEMBROLIZUMAB
     Indication: MALIGNANT NEOPLASM OF UNKNOWN PRIMARY SITE
     Dosage: DOSE: FOLLOWING A SCHEME; STRENGTH: 25 MG/ML
     Route: 042
     Dates: start: 20191112, end: 20191112

REACTIONS (4)
  - Immune-mediated encephalitis [Fatal]
  - Pyrexia [Fatal]
  - Dyspnoea [Fatal]
  - Confusional state [Fatal]

NARRATIVE: CASE EVENT DATE: 20191123
